FAERS Safety Report 15942021 (Version 1)
Quarter: 2019Q1

REPORT INFORMATION
  Report Type: Spontaneous
  Country: CN (occurrence: CN)
  Receive Date: 20190209
  Receipt Date: 20190209
  Transmission Date: 20190417
  Serious: Yes (Other)
  Sender: FDA-Public Use
  Company Number: CN-ROCHE-2256478

PATIENT
  Age: 40 Year
  Sex: Female

DRUGS (2)
  1. LAPATINIB [Concomitant]
     Active Substance: LAPATINIB
     Indication: INVASIVE DUCTAL BREAST CARCINOMA
  2. HERCEPTIN [Suspect]
     Active Substance: TRASTUZUMAB
     Indication: INVASIVE DUCTAL BREAST CARCINOMA
     Route: 065
     Dates: end: 201205

REACTIONS (2)
  - Platelet count decreased [Unknown]
  - Hyperplasia [Not Recovered/Not Resolved]

NARRATIVE: CASE EVENT DATE: 2013
